FAERS Safety Report 12732768 (Version 1)
Quarter: 2016Q3

REPORT INFORMATION
  Report Type: Spontaneous
  Country: US (occurrence: US)
  Receive Date: 20160910
  Receipt Date: 20160910
  Transmission Date: 20161109
  Serious: Yes (Disabling)
  Sender: FDA-Public Use
  Company Number: None

PATIENT
  Age: 45 Year
  Sex: Female
  Weight: 55.35 kg

DRUGS (4)
  1. MIRALAX [Suspect]
     Active Substance: POLYETHYLENE GLYCOL 3350
  2. BOTOX [Suspect]
     Active Substance: ONABOTULINUMTOXINA
     Indication: SKIN COSMETIC PROCEDURE
     Route: 058
     Dates: start: 20150902
  3. ASPIRIN. [Concomitant]
     Active Substance: ASPIRIN
  4. MILK OF MAGNESIA [Concomitant]
     Active Substance: MAGNESIUM HYDROXIDE

REACTIONS (6)
  - Ocular hyperaemia [None]
  - Eye irritation [None]
  - Foreign body sensation in eyes [None]
  - Dry eye [None]
  - Eye pain [None]
  - Dry mouth [None]

NARRATIVE: CASE EVENT DATE: 20150903
